FAERS Safety Report 12206657 (Version 2)
Quarter: 2016Q4

REPORT INFORMATION
  Report Type: Spontaneous
  Country: US (occurrence: US)
  Receive Date: 20160324
  Receipt Date: 20161110
  Transmission Date: 20170207
  Serious: Yes (Hospitalization, Other)
  Sender: FDA-Public Use
  Company Number: US-ROCHE-1731223

PATIENT
  Age: 73 Year
  Sex: Female

DRUGS (1)
  1. ZELBORAF [Suspect]
     Active Substance: VEMURAFENIB
     Indication: MALIGNANT MELANOMA
     Route: 048
     Dates: start: 20140109, end: 20151130

REACTIONS (2)
  - Abdominal neoplasm [Unknown]
  - Gastric neoplasm [Not Recovered/Not Resolved]

NARRATIVE: CASE EVENT DATE: 20151130
